FAERS Safety Report 8929362 (Version 1)
Quarter: 2012Q4

REPORT INFORMATION
  Report Type: 
  Country: IT (occurrence: IT)
  Receive Date: 20121127
  Receipt Date: 20121127
  Transmission Date: 20130627
  Serious: Yes (Other)
  Sender: FDA-Public Use
  Company Number: IT-TEVA-371664ISR

PATIENT
  Age: 67 Year
  Sex: Male

DRUGS (10)
  1. IRINOTECAN [Suspect]
     Indication: COLON CANCER
     Route: 065
  2. FLUOROURACIL [Suspect]
     Indication: LUNG ADENOCARCINOMA
     Route: 065
  3. CISPLATIN [Suspect]
     Indication: HODGKIN^S DISEASE STAGE III
     Route: 065
  4. DOXORUBICIN [Suspect]
     Indication: LUNG NEOPLASM MALIGNANT
     Route: 065
  5. BLEOMYCIN [Suspect]
     Indication: LUNG NEOPLASM MALIGNANT
     Route: 065
  6. VINBLASTINE [Suspect]
     Indication: LUNG NEOPLASM MALIGNANT
     Route: 065
  7. FOLINIC ACID [Suspect]
     Indication: ADENOCARCINOMA
     Route: 065
  8. DACARBAZINE [Suspect]
     Indication: LUNG NEOPLASM MALIGNANT
     Route: 065
  9. DEXAMETHASONE [Suspect]
     Indication: HODGKIN^S DISEASE STAGE III
     Route: 065
  10. CYTARABINE [Suspect]
     Indication: HODGKIN^S DISEASE STAGE III
     Route: 065

REACTIONS (1)
  - Tuberculosis [Recovered/Resolved]
